FAERS Safety Report 23605364 (Version 1)
Quarter: 2024Q1

REPORT INFORMATION
  Report Type: Report from Study
  Country: GB (occurrence: GB)
  Receive Date: 20240307
  Receipt Date: 20240307
  Transmission Date: 20240410
  Serious: Yes (Other)
  Sender: FDA-Public Use
  Company Number: GB-ULTRAGENYX PHARMACEUTICAL INC.-GB-UGX-24-00348

PATIENT
  Age: 20 Year
  Sex: Male
  Weight: 106 kg

DRUGS (1)
  1. TRIHEPTANOIN [Suspect]
     Active Substance: TRIHEPTANOIN
     Indication: Very long-chain acyl-coenzyme A dehydrogenase deficiency
     Dosage: 15 MILLILITER, Q6H
     Route: 048
     Dates: start: 20170112

REACTIONS (1)
  - Rhabdomyolysis [Unknown]
